FAERS Safety Report 12867691 (Version 2)
Quarter: 2016Q4

REPORT INFORMATION
  Report Type: Spontaneous
  Country: US (occurrence: US)
  Receive Date: 20161020
  Receipt Date: 20161229
  Transmission Date: 20170207
  Serious: Yes (Hospitalization, Other)
  Sender: FDA-Public Use
  Company Number: US-LUNDBECK-DKLU2021015

PATIENT
  Age: 24 Year
  Sex: Female

DRUGS (2)
  1. NORTHERA [Suspect]
     Active Substance: DROXIDOPA
     Indication: AUTONOMIC NEUROPATHY
     Route: 065
  2. NORTHERA [Suspect]
     Active Substance: DROXIDOPA
     Route: 065
     Dates: start: 201612

REACTIONS (11)
  - Petit mal epilepsy [Unknown]
  - Autonomic failure syndrome [Unknown]
  - Orthostatic hypotension [Unknown]
  - Proteinuria [Unknown]
  - Complex partial seizures [Unknown]
  - Loss of consciousness [Unknown]
  - Syncope [Unknown]
  - Fatigue [Unknown]
  - Blood pressure inadequately controlled [Unknown]
  - Cataract [Unknown]
  - Seizure [Unknown]

NARRATIVE: CASE EVENT DATE: 20161208
